FAERS Safety Report 7242090-7 (Version None)
Quarter: 2011Q1

REPORT INFORMATION
  Report Type: 
  Country: None (occurrence: None)
  Receive Date: 20110124
  Receipt Date: 20110120
  Transmission Date: 20110831
  Serious: Yes (Other)
  Sender: FDA-Public Use
  Company Number: US-PFIZER INC-2011014637

PATIENT
  Sex: Female
  Weight: 53.061 kg

DRUGS (4)
  1. OXYCODONE [Concomitant]
     Dosage: UNK
  2. CHANTIX [Suspect]
     Indication: SMOKING CESSATION THERAPY
     Dosage: 1 MG, 2X/DAY
     Route: 048
     Dates: start: 20110112
  3. TRAMADOL [Concomitant]
     Dosage: UNK
  4. NEURONTIN [Concomitant]
     Dosage: UNK

REACTIONS (5)
  - NAUSEA [None]
  - SOMNOLENCE [None]
  - INJURY [None]
  - FALL [None]
  - DIZZINESS [None]
